FAERS Safety Report 19763018 (Version 1)
Quarter: 2021Q3

REPORT INFORMATION
  Report Type: Spontaneous
  Country: NL (occurrence: ES)
  Receive Date: 20210830
  Receipt Date: 20210830
  Transmission Date: 20211014
  Serious: Yes (Life-Threatening, Hospitalization)
  Sender: FDA-Public Use
  Company Number: ES-FRESENIUS KABI-FK202109137

PATIENT
  Age: 72 Year
  Sex: Male
  Weight: 72.2 kg

DRUGS (3)
  1. FUROSEMIDE (MANUFACTURER UNKNOWN) [Interacting]
     Active Substance: FUROSEMIDE
     Route: 048
     Dates: start: 20190909
  2. ACETAZOLAMIDE. [Interacting]
     Active Substance: ACETAZOLAMIDE
     Indication: CARDIAC FAILURE
     Dosage: 0?0?1/2
     Route: 048
     Dates: start: 20210430, end: 20210516
  3. FUROSEMIDE (MANUFACTURER UNKNOWN) [Suspect]
     Active Substance: FUROSEMIDE
     Indication: CARDIAC FAILURE
     Dosage: 100MG DIARIOS 3 D?AS (28, 29 Y 30 DE ABRIL) // 100 MG DAILY 3 DAYS (APRIL 28TH, 29TH, AND 30TH)
     Route: 042
     Dates: start: 20210428, end: 20210430

REACTIONS (1)
  - Encephalopathy [Recovered/Resolved]

NARRATIVE: CASE EVENT DATE: 20210508
